FAERS Safety Report 14298538 (Version 1)
Quarter: 2017Q4

REPORT INFORMATION
  Report Type: Spontaneous
  Country: IN (occurrence: IN)
  Receive Date: 20171218
  Receipt Date: 20171218
  Transmission Date: 20180321
  Serious: Yes (Death)
  Sender: FDA-Public Use
  Company Number: PHHY2017IN182847

PATIENT
  Age: 78 Year
  Sex: Male

DRUGS (9)
  1. DEXAMETHASONE. [Suspect]
     Active Substance: DEXAMETHASONE
     Indication: PSEUDOMEMBRANOUS COLITIS
     Dosage: UNK
     Route: 065
  2. METRONIDAZOLE. [Suspect]
     Active Substance: METRONIDAZOLE
     Indication: PSEUDOMEMBRANOUS COLITIS
     Dosage: UNK
     Route: 065
  3. SALBUTAMOL [Concomitant]
     Active Substance: ALBUTEROL
     Indication: PLEURAL EFFUSION
     Dosage: UNK
     Route: 055
  4. CIPROFLOXACIN. [Suspect]
     Active Substance: CIPROFLOXACIN
     Indication: PSEUDOMEMBRANOUS COLITIS
     Dosage: UNK
     Route: 065
  5. IPRATROPIUM BROMIDE. [Concomitant]
     Active Substance: IPRATROPIUM BROMIDE
     Indication: PLEURAL EFFUSION
     Dosage: UNK, Q8H
     Route: 055
  6. CHLORPHENIRAMINE. [Suspect]
     Active Substance: CHLORPHENIRAMINE
     Indication: PSEUDOMEMBRANOUS COLITIS
     Dosage: UNK
     Route: 065
  7. RANITIDINE. [Concomitant]
     Active Substance: RANITIDINE
     Indication: PLEURAL EFFUSION
     Dosage: 50 MG, Q12H
     Route: 042
  8. DERIPHYLLIN [Concomitant]
     Indication: PLEURAL EFFUSION
     Dosage: 43 MG, Q8H
     Route: 042
  9. CEFAZOLINE [Concomitant]
     Active Substance: CEFAZOLIN SODIUM
     Indication: PLEURAL EFFUSION
     Dosage: 1 G, Q12H
     Route: 042

REACTIONS (2)
  - Product use in unapproved indication [Unknown]
  - Respiratory disorder [Fatal]
